FAERS Safety Report 9586901 (Version 1)
Quarter: 2013Q4

REPORT INFORMATION
  Report Type: Spontaneous
  Country: PT (occurrence: PT)
  Receive Date: 20131003
  Receipt Date: 20131003
  Transmission Date: 20140711
  Serious: Yes (Other)
  Sender: FDA-Public Use
  Company Number: PT-JNJFOC-20131001373

PATIENT
  Age: 38 Year
  Sex: Male
  Weight: 85 kg

DRUGS (3)
  1. XARELTO [Suspect]
     Indication: THROMBOSIS PROPHYLAXIS
     Route: 048
     Dates: start: 20130830, end: 20130905
  2. DICLOFENAC [Concomitant]
     Indication: INFLAMMATORY PAIN
     Route: 048
     Dates: start: 20130830, end: 20130910
  3. METAMIZOLE MAGNESIUM [Concomitant]
     Indication: PAIN
     Route: 048
     Dates: start: 20130830

REACTIONS (4)
  - Dermatitis [Recovered/Resolved]
  - Dermatitis exfoliative generalised [Recovered/Resolved]
  - Headache [Recovered/Resolved]
  - Dizziness [Recovered/Resolved]
